FAERS Safety Report 6255375-8 (Version None)
Quarter: 2009Q3

REPORT INFORMATION
  Report Type: 
  Country: None (occurrence: None)
  Receive Date: 20090702
  Receipt Date: 20090629
  Transmission Date: 20100115
  Serious: Yes (Life-Threatening, Hospitalization, Other)
  Sender: FDA-Public Use
  Company Number: DE-AMGEN-UK338083

PATIENT
  Sex: Male
  Weight: 60 kg

DRUGS (4)
  1. VECTIBIX [Suspect]
     Indication: COLORECTAL CANCER
     Route: 042
     Dates: start: 20080423, end: 20080625
  2. ALLOPURINOL [Concomitant]
     Route: 048
  3. RAMIPRIL [Concomitant]
     Route: 048
  4. TRIAMTERENE AND HYDROCHLOROTHIAZIDE [Concomitant]
     Route: 048

REACTIONS (7)
  - ABDOMINAL PAIN UPPER [None]
  - CHOLECYSTITIS INFECTIVE [None]
  - GENERAL PHYSICAL HEALTH DETERIORATION [None]
  - RASH [None]
  - RASH PAPULAR [None]
  - SKIN NECROSIS [None]
  - SKIN ULCER [None]
